FAERS Safety Report 9882105 (Version 3)
Quarter: 2014Q2

REPORT INFORMATION
  Report Type: Spontaneous
  Country: US (occurrence: US)
  Receive Date: 20140207
  Receipt Date: 20140610
  Transmission Date: 20141212
  Serious: Yes (Other)
  Sender: FDA-Public Use
  Company Number: US-BAYER-2014-016939

PATIENT
  Age: 23 Year
  Sex: Female

DRUGS (1)
  1. MIRENA [Suspect]
     Indication: CONTRACEPTION
     Dosage: 20 MCG/24HR, CONT
     Route: 015
     Dates: start: 201304

REACTIONS (8)
  - Procedural pain [None]
  - Menorrhagia [None]
  - Hypomenorrhoea [Recovered/Resolved]
  - Amenorrhoea [Recovered/Resolved]
  - Device dislocation [Recovered/Resolved]
  - Off label use [Recovered/Resolved]
  - Genital haemorrhage [Not Recovered/Not Resolved]
  - Abdominal pain [None]
